FAERS Safety Report 15577453 (Version 1)
Quarter: 2018Q4

REPORT INFORMATION
  Report Type: Spontaneous
  Country: IS (occurrence: IS)
  Receive Date: 20181102
  Receipt Date: 20181102
  Transmission Date: 20190205
  Serious: Yes (Other)
  Sender: FDA-Public Use
  Company Number: IS-ASTELLAS-2018US046563

PATIENT
  Sex: Female

DRUGS (2)
  1. BETMIGA [Suspect]
     Active Substance: MIRABEGRON
     Indication: HYPERTONIC BLADDER
     Route: 065
  2. BETMIGA [Suspect]
     Active Substance: MIRABEGRON
     Route: 065

REACTIONS (1)
  - Hypertensive crisis [Unknown]
